FAERS Safety Report 9254677 (Version 1)
Quarter: 2013Q2

REPORT INFORMATION
  Report Type: Spontaneous
  Country: US (occurrence: None)
  Receive Date: 20130418
  Receipt Date: 20130418
  Transmission Date: 20140414
  Serious: Yes (Hospitalization)
  Sender: FDA-Public Use
  Company Number: JPI-P-031077

PATIENT
  Age: 54 Year
  Sex: Female

DRUGS (4)
  1. XYREM (500 MILLIGRAM/MILLILITERS, SOLUTION) (SODIUM OXYBATE) [Suspect]
     Indication: NARCOLEPSY
     Dosage: (2.25GM, 2 IN 1 D), ORAL
     Route: 048
     Dates: start: 20100525
  2. ESCITALOPRAM [Concomitant]
  3. POTASSIUM CHLORIDE [Concomitant]
  4. VITAMINS [Concomitant]

REACTIONS (5)
  - Convulsion [None]
  - Convulsion [None]
  - Enuresis [None]
  - Fall [None]
  - Muscle atrophy [None]
